FAERS Safety Report 5980842-1 (Version None)
Quarter: 2008Q4

REPORT INFORMATION
  Report Type: 
  Country: None (occurrence: None)
  Receive Date: 20081205
  Receipt Date: 20080602
  Transmission Date: 20090506
  Serious: No
  Sender: FDA-Public Use
  Company Number: A0730632A

PATIENT
  Age: 43 Year
  Sex: Female

DRUGS (5)
  1. COMMIT [Suspect]
     Dates: start: 20080526, end: 20080530
  2. UNKNOWN MEDICATION [Concomitant]
  3. PAXIL [Concomitant]
  4. XANAX [Concomitant]
  5. OXYBUTYN [Concomitant]

REACTIONS (1)
  - PANIC ATTACK [None]
